FAERS Safety Report 10235150 (Version 2)
Quarter: 2014Q2

REPORT INFORMATION
  Report Type: Report from Study
  Country: NP (occurrence: NP)
  Receive Date: 20140613
  Receipt Date: 20140626
  Transmission Date: 20141212
  Serious: Yes (Death, Hospitalization)
  Sender: FDA-Public Use
  Company Number: PHHY2014NP072307

PATIENT
  Age: 48 Year
  Sex: Male
  Weight: 60 kg

DRUGS (4)
  1. GLIVEC [Suspect]
     Indication: CHRONIC MYELOID LEUKAEMIA
     Dosage: 400 MG, PER DAY
     Dates: start: 20101004, end: 20131205
  2. GLIVEC [Suspect]
     Dosage: 600 MG, PER DAY
     Dates: start: 20131206, end: 20140103
  3. GLIVEC [Suspect]
     Dosage: 800 MG, PER DAY
     Dates: start: 20140203
  4. GLIVEC [Suspect]
     Dosage: 400 MG, BID
     Route: 048
     Dates: start: 20140501, end: 20140527

REACTIONS (12)
  - Pneumonia [Fatal]
  - Thrombotic thrombocytopenic purpura [Fatal]
  - Thrombocytopenia [Fatal]
  - Haemolytic uraemic syndrome [Fatal]
  - Haemorrhage intracranial [Fatal]
  - Chronic myeloid leukaemia [Fatal]
  - Malignant neoplasm progression [Fatal]
  - Cardiac failure congestive [Unknown]
  - Treatment failure [Unknown]
  - Drug intolerance [Unknown]
  - Leukocytosis [Unknown]
  - Drug resistance [Unknown]
